FAERS Safety Report 19005692 (Version 3)
Quarter: 2021Q2

REPORT INFORMATION
  Report Type: Spontaneous
  Country: US (occurrence: US)
  Receive Date: 20210313
  Receipt Date: 20210503
  Transmission Date: 20210717
  Serious: Yes (Other)
  Sender: FDA-Public Use
  Company Number: US-ORGANON-2102USA002096

PATIENT
  Sex: Female
  Weight: 72.56 kg

DRUGS (4)
  1. BUSPAR [Concomitant]
     Active Substance: BUSPIRONE HYDROCHLORIDE
     Dosage: UNK
  2. NEXPLANON [Suspect]
     Active Substance: ETONOGESTREL
     Indication: CONTRACEPTION
     Dosage: 1 IMPLANT
     Route: 059
     Dates: start: 2014, end: 2021
  3. LEXAPRO [Concomitant]
     Active Substance: ESCITALOPRAM OXALATE
     Dosage: UNK
  4. VALACYCLOVIR HYDROCHLORIDE. [Concomitant]
     Active Substance: VALACYCLOVIR HYDROCHLORIDE
     Dosage: UNK

REACTIONS (5)
  - Bacterial vulvovaginitis [Unknown]
  - Complication of device removal [Recovered/Resolved]
  - Incorrect product administration duration [Unknown]
  - Surgery [Unknown]
  - Implant site haemorrhage [Not Recovered/Not Resolved]

NARRATIVE: CASE EVENT DATE: 2017
